FAERS Safety Report 16263601 (Version 2)
Quarter: 2019Q2

REPORT INFORMATION
  Report Type: Spontaneous
  Country: US (occurrence: US)
  Receive Date: 20190502
  Receipt Date: 20190627
  Transmission Date: 20190711
  Serious: No
  Sender: FDA-Public Use
  Company Number: US-LEXICON PHARMACEUTICALS, INC-19-1606-00457

PATIENT
  Sex: Male

DRUGS (3)
  1. TELOTRISTAT ETHYL [Suspect]
     Active Substance: TELOTRISTAT ETHYL
     Indication: NEUROENDOCRINE TUMOUR
  2. TELOTRISTAT ETHYL [Suspect]
     Active Substance: TELOTRISTAT ETHYL
     Indication: PANCREATIC DISORDER
     Route: 048
     Dates: start: 20190410
  3. OXYCODONE [Concomitant]
     Active Substance: OXYCODONE

REACTIONS (4)
  - Frequent bowel movements [Unknown]
  - Pain in extremity [Unknown]
  - Oedema peripheral [Unknown]
  - Gait disturbance [Unknown]
